FAERS Safety Report 11518864 (Version 2)
Quarter: 2017Q1

REPORT INFORMATION
  Report Type: Spontaneous
  Country: US (occurrence: US)
  Receive Date: 20150917
  Receipt Date: 20170213
  Transmission Date: 20170428
  Serious: No
  Sender: FDA-Public Use
  Company Number: US-PFIZER INC-2015299467

PATIENT
  Age: 70 Year
  Sex: Male

DRUGS (1)
  1. PANTOPRAZOLE [Suspect]
     Active Substance: PANTOPRAZOLE SODIUM
     Dosage: UNK

REACTIONS (4)
  - Eructation [Unknown]
  - Condition aggravated [Unknown]
  - Flatulence [Unknown]
  - Discomfort [Unknown]

NARRATIVE: CASE EVENT DATE: 201508
